FAERS Safety Report 13144510 (Version 1)
Quarter: 2017Q1

REPORT INFORMATION
  Report Type: Report from Study
  Country: HU (occurrence: HU)
  Receive Date: 20170124
  Receipt Date: 20170124
  Transmission Date: 20170428
  Serious: No
  Sender: FDA-Public Use
  Company Number: HU-JNJFOC-20160813394

PATIENT
  Age: 69 Year
  Sex: Female
  Weight: 103 kg

DRUGS (4)
  1. BISOLVON [Concomitant]
     Active Substance: BROMHEXINE HYDROCHLORIDE
     Indication: CARDIAC DISORDER
     Route: 065
  2. MINIPRESS [Concomitant]
     Active Substance: PRAZOSIN HYDROCHLORIDE
     Indication: BLOOD PRESSURE ABNORMAL
     Route: 065
  3. CHINOTAL [Concomitant]
     Active Substance: PENTOXIFYLLINE
     Indication: DIABETES MELLITUS
     Route: 065
  4. STELARA [Suspect]
     Active Substance: USTEKINUMAB
     Indication: PSORIASIS
     Route: 058
     Dates: start: 20151022

REACTIONS (4)
  - Drug ineffective [Unknown]
  - Pulmonary calcification [Not Recovered/Not Resolved]
  - Psoriasis [Not Recovered/Not Resolved]
  - Emphysema [Not Recovered/Not Resolved]

NARRATIVE: CASE EVENT DATE: 201607
